FAERS Safety Report 8557527-0 (Version None)
Quarter: 2012Q3

REPORT INFORMATION
  Report Type: 
  Country: None (occurrence: None)
  Receive Date: 20120801
  Receipt Date: 20120727
  Transmission Date: 20120928
  Serious: Yes (Hospitalization, Other)
  Sender: FDA-Public Use
  Company Number: US-PFIZER INC-2012105180

PATIENT
  Sex: Male

DRUGS (1)
  1. CHANTIX [Suspect]
     Indication: SMOKING CESSATION THERAPY
     Dosage: 0.5 MG, STARTER PACK
     Route: 048
     Dates: start: 20091014, end: 20091106

REACTIONS (7)
  - SUICIDAL IDEATION [None]
  - DEPRESSION [None]
  - INTENTIONAL OVERDOSE [None]
  - NIGHTMARE [None]
  - ANXIETY [None]
  - INSOMNIA [None]
  - SUICIDE ATTEMPT [None]
